FAERS Safety Report 4523264-2 (Version None)
Quarter: 2004Q4

REPORT INFORMATION
  Report Type: 
  Country: None (occurrence: None)
  Receive Date: 20041208
  Receipt Date: 20041126
  Transmission Date: 20050328
  Serious: Yes (Hospitalization)
  Sender: FDA-Public Use
  Company Number: 2004CG02190

PATIENT
  Age: 51 Year
  Sex: Male
  Weight: 73 kg

DRUGS (6)
  1. CRESTOR [Suspect]
     Indication: DYSLIPIDAEMIA
     Dosage: 10 MG QD PO
     Route: 048
     Dates: start: 20040424, end: 20040618
  2. AVLOCARDYL [Concomitant]
  3. TEMESTA [Concomitant]
  4. TANAKAN [Concomitant]
  5. PROPOFOL [Concomitant]
  6. ACETAMINOPHEN [Concomitant]

REACTIONS (5)
  - BLOOD TRIGLYCERIDES INCREASED [None]
  - CYTOLYTIC HEPATITIS [None]
  - HEPATOTOXICITY [None]
  - HYPERCHOLESTEROLAEMIA [None]
  - MYALGIA [None]
